FAERS Safety Report 6392549-X (Version None)
Quarter: 2009Q4

REPORT INFORMATION
  Report Type: 
  Country: None (occurrence: None)
  Receive Date: 20091007
  Receipt Date: 20090929
  Transmission Date: 20100525
  Serious: Yes (Hospitalization)
  Sender: FDA-Public Use
  Company Number: KR-MERCK-0909KOR00043

PATIENT
  Age: 7 Year
  Sex: Male

DRUGS (8)
  1. SINGULAIR [Suspect]
     Indication: ASTHMA
     Route: 048
     Dates: end: 20080101
  2. SINGULAIR [Suspect]
     Route: 048
     Dates: start: 20090901, end: 20090901
  3. SINGULAIR [Suspect]
     Indication: RHINITIS ALLERGIC
     Route: 048
     Dates: end: 20080101
  4. SINGULAIR [Suspect]
     Route: 048
     Dates: start: 20090901, end: 20090901
  5. LEVOCETIRIZINE DIHYDROCHLORIDE [Concomitant]
     Indication: ASTHMA
     Route: 065
  6. LEVOCETIRIZINE DIHYDROCHLORIDE [Concomitant]
     Route: 048
  7. LEVOCETIRIZINE DIHYDROCHLORIDE [Concomitant]
     Indication: RHINITIS ALLERGIC
     Route: 065
  8. LEVOCETIRIZINE DIHYDROCHLORIDE [Concomitant]
     Route: 048

REACTIONS (6)
  - BRONCHITIS [None]
  - DECREASED APPETITE [None]
  - OTITIS MEDIA [None]
  - PNEUMONIA [None]
  - PYREXIA [None]
  - VASCULITIS [None]
